FAERS Safety Report 9189217 (Version 1)
Quarter: 2013Q1

REPORT INFORMATION
  Report Type: Spontaneous
  Country: NO (occurrence: None)
  Receive Date: 20130322
  Receipt Date: 20130322
  Transmission Date: 20140127
  Serious: Yes (Death)
  Sender: FDA-Public Use
  Company Number: 2013-05164

PATIENT
  Age: 73 Year
  Sex: Female

DRUGS (5)
  1. FLUDARABINE [Suspect]
     Indication: CHRONIC LYMPHOCYTIC LEUKAEMIA
     Route: 048
     Dates: start: 20121015, end: 20130107
  2. BACTRIM [Concomitant]
  3. CYCLOPHOSPHAMIDE [Concomitant]
  4. VALTREX [Concomitant]
  5. RITUXIMAB [Concomitant]

REACTIONS (4)
  - Thrombocytopenia [None]
  - Autoimmune haemolytic anaemia [None]
  - Cerebral haemorrhage [None]
  - Subdural haemorrhage [None]
